FAERS Safety Report 8002804-5 (Version None)
Quarter: 2011Q4

REPORT INFORMATION
  Report Type: 
  Country: None (occurrence: None)
  Receive Date: 20111222
  Receipt Date: 20110627
  Transmission Date: 20120403
  Serious: No
  Sender: FDA-Public Use
  Company Number: US-GLAXOSMITHKLINE-A0841083A

PATIENT
  Sex: Male

DRUGS (4)
  1. ASPIRIN [Concomitant]
  2. AVODART [Suspect]
     Indication: PROSTATIC HAEMORRHAGE
     Dosage: .5MG PER DAY
     Route: 048
  3. HYDROCHLOROTHIAZIDE [Concomitant]
  4. VITAMIN TAB [Concomitant]

REACTIONS (3)
  - PRURITUS [None]
  - GYNAECOMASTIA [None]
  - BREAST ENLARGEMENT [None]
